FAERS Safety Report 11863858 (Version 1)
Quarter: 2015Q4

REPORT INFORMATION
  Report Type: Spontaneous
  Country: GB (occurrence: GB)
  Receive Date: 20151223
  Receipt Date: 20151223
  Transmission Date: 20160305
  Serious: Yes (Other)
  Sender: FDA-Public Use
  Company Number: GB-B. BRAUN MEDICAL INC.-1045813

PATIENT
  Sex: Female

DRUGS (2)
  1. AMOXICILLIN. [Concomitant]
     Active Substance: AMOXICILLIN
     Route: 048
  2. METRONIDAZOLE. [Suspect]
     Active Substance: METRONIDAZOLE

REACTIONS (8)
  - Irritability [None]
  - Fatigue [None]
  - Depression [None]
  - Abdominal distension [None]
  - Abdominal pain [None]
  - Menstruation delayed [None]
  - Headache [None]
  - Premenstrual syndrome [None]
